FAERS Safety Report 8829669 (Version 1)
Quarter: 2012Q4

REPORT INFORMATION
  Report Type: Spontaneous
  Country: US (occurrence: None)
  Receive Date: 20121005
  Receipt Date: 20121005
  Transmission Date: 20130627
  Serious: Yes (Hospitalization)
  Sender: FDA-Public Use
  Company Number: None

PATIENT
  Age: 76 Year
  Sex: Male
  Weight: 90.2 kg

DRUGS (4)
  1. LAMOTRIGINE [Suspect]
     Indication: BIPOLAR AFFECTIVE DISORDER
     Route: 048
     Dates: start: 20101102, end: 20120828
  2. LAMOTRIGINE [Suspect]
     Indication: MANIC
     Route: 048
     Dates: start: 20101102, end: 20120828
  3. LAMOTRIGINE [Suspect]
     Indication: SEIZURE
     Route: 048
     Dates: start: 20101102, end: 20120828
  4. QUETIAPINE [Suspect]
     Route: 048
     Dates: start: 20100208

REACTIONS (2)
  - Pancreatitis acute [None]
  - Blood triglycerides decreased [None]
